FAERS Safety Report 14105101 (Version 1)
Quarter: 2017Q4

REPORT INFORMATION
  Report Type: Spontaneous
  Country: US (occurrence: US)
  Receive Date: 20171018
  Receipt Date: 20171018
  Transmission Date: 20180321
  Serious: Yes (Other)
  Sender: FDA-Public Use
  Company Number: US-SA-2017SA199811

PATIENT
  Age: 4 Year
  Sex: Female

DRUGS (1)
  1. PHENYLEPHRINE HYDROCHLORIDE. [Suspect]
     Active Substance: PHENYLEPHRINE HYDROCHLORIDE
     Indication: PROCEDURAL HAEMORRHAGE
     Dosage: 3 TO 5 DROPS IN 10% SOLUTION
     Route: 047

REACTIONS (2)
  - Hypertension [Unknown]
  - Pulmonary oedema [Unknown]
